FAERS Safety Report 25372769 (Version 2)
Quarter: 2025Q3

REPORT INFORMATION
  Report Type: Spontaneous
  Country: EU (occurrence: EU)
  Receive Date: 20250529
  Receipt Date: 20250810
  Transmission Date: 20251021
  Serious: Yes (Other)
  Sender: ALEXION PHARMACEUTICALS
  Company Number: None

PATIENT
  Age: 77 Year
  Sex: Male
  Weight: 99 kg

DRUGS (1)
  1. DAPAGLIFLOZIN [Suspect]
     Active Substance: DAPAGLIFLOZIN
     Indication: Cardiac failure
     Dosage: FORXIGA 10 MG/DIE.
     Dates: start: 202309, end: 202503

REACTIONS (1)
  - Polycythaemia [Not Recovered/Not Resolved]

NARRATIVE: CASE EVENT DATE: 20250318
